FAERS Safety Report 13557016 (Version 1)
Quarter: 2017Q2

REPORT INFORMATION
  Report Type: Spontaneous
  Country: US (occurrence: US)
  Receive Date: 20170517
  Receipt Date: 20170517
  Transmission Date: 20170830
  Serious: Yes (Life-Threatening)
  Sender: FDA-Public Use
  Company Number: None

PATIENT
  Age: 16 Year
  Sex: Female
  Weight: 51 kg

DRUGS (1)
  1. ORENCIA [Suspect]
     Active Substance: ABATACEPT
     Indication: SPONDYLITIS
     Dosage: ?          OTHER FREQUENCY:EVERY 4 WEEKS;?
     Route: 041

REACTIONS (6)
  - Swollen tongue [None]
  - Paraesthesia oral [None]
  - Eye swelling [None]
  - Lip swelling [None]
  - Throat tightness [None]
  - Drooling [None]

NARRATIVE: CASE EVENT DATE: 20170515
